FAERS Safety Report 7408877-2 (Version None)
Quarter: 2011Q2

REPORT INFORMATION
  Report Type: 
  Country: None (occurrence: None)
  Receive Date: 20110412
  Receipt Date: 20110407
  Transmission Date: 20111010
  Serious: Yes (Death, Hospitalization)
  Sender: FDA-Public Use
  Company Number: PHHY2011FR01877

PATIENT
  Sex: Male
  Weight: 66 kg

DRUGS (10)
  1. RASILEZ [Suspect]
     Indication: PROTEINURIA
  2. DIAMICRON [Concomitant]
  3. METFORMIN [Concomitant]
     Dosage: UNK
     Dates: start: 19981201
  4. RASILEZ [Suspect]
     Indication: HYPERTENSION
     Dosage: 300 MG, QD
     Route: 048
     Dates: start: 20100202, end: 20101206
  5. TAREG [Suspect]
     Dosage: 160 MG, UNK
     Route: 048
  6. HYPERIUM [Concomitant]
     Dosage: UNK
  7. ISOPTIN [Concomitant]
     Indication: HYPERTENSION
     Dosage: 240 MG, UNK
     Dates: start: 20101001
  8. ACETAMINOPHEN AND TRAMADOL HCL [Concomitant]
     Indication: SCIATICA
     Dosage: 37.5 MG, UNK
  9. ESOMEPRAZOLE [Concomitant]
     Dosage: 40 MG, UNK
     Dates: start: 20090303
  10. GLUCOR [Concomitant]
     Dosage: UNK

REACTIONS (3)
  - HYPERKALAEMIA [None]
  - SYNCOPE [None]
  - BRADYCARDIA [None]
